FAERS Safety Report 25710853 (Version 2)
Quarter: 2025Q4

REPORT INFORMATION
  Report Type: Spontaneous
  Country: US (occurrence: US)
  Receive Date: 20250821
  Receipt Date: 20251109
  Transmission Date: 20260118
  Serious: No
  Sender: SANOFI AVENTIS
  Company Number: US-SA-2025SA248594

PATIENT
  Age: 61 Year
  Sex: Female

DRUGS (1)
  1. DUPIXENT [Suspect]
     Active Substance: DUPILUMAB
     Indication: Asthma
     Dosage: 300 MG, QOW
     Route: 058
     Dates: start: 20250622

REACTIONS (13)
  - Sinus congestion [Not Recovered/Not Resolved]
  - COVID-19 [Recovered/Resolved]
  - Abdominal discomfort [Recovering/Resolving]
  - Head discomfort [Recovering/Resolving]
  - Respiratory tract congestion [Recovering/Resolving]
  - Diarrhoea [Recovering/Resolving]
  - Asthma [Unknown]
  - Heart rate increased [Unknown]
  - Dizziness [Unknown]
  - Wheezing [Unknown]
  - Dyspnoea [Unknown]
  - Hypersensitivity [Unknown]
  - Incorrect dose administered [Unknown]

NARRATIVE: CASE EVENT DATE: 20250101
